FAERS Safety Report 23513349 (Version 1)
Quarter: 2024Q1

REPORT INFORMATION
  Report Type: Spontaneous
  Country: US (occurrence: None)
  Receive Date: 20240210
  Receipt Date: 20240210
  Transmission Date: 20240410
  Serious: Yes (unspecified)
  Sender: FDA-Public Use
  Company Number: None

PATIENT
  Age: 52 Year
  Sex: Female
  Weight: 73.8 kg

DRUGS (12)
  1. MONTELUKAST [Suspect]
     Active Substance: MONTELUKAST SODIUM
     Indication: Rhinitis allergic
     Dosage: OTHER QUANTITY : 1 TABLET(S);?FREQUENCY : DAILY;?
     Route: 048
     Dates: start: 20240131, end: 20240209
  2. LEVOTHYROXINE [Concomitant]
     Active Substance: LEVOTHYROXINE\LEVOTHYROXINE SODIUM
  3. PHENTERMINE [Concomitant]
     Active Substance: PHENTERMINE
  4. TOPAMAX [Concomitant]
     Active Substance: TOPIRAMATE
  5. METOPROLOL SUCCINATE [Concomitant]
     Active Substance: METOPROLOL SUCCINATE
  6. FENOFIBRATE [Concomitant]
     Active Substance: FENOFIBRATE
  7. ZETIA [Concomitant]
     Active Substance: EZETIMIBE
  8. NORCO [Concomitant]
     Active Substance: ACETAMINOPHEN\HYDROCODONE BITARTRATE
  9. ESTRADIOL [Concomitant]
     Active Substance: ESTRADIOL
  10. ALBUTEROL [Concomitant]
     Active Substance: ALBUTEROL
  11. CLOBETASOL [Concomitant]
     Active Substance: CLOBETASOL
  12. PREVACID [Concomitant]
     Active Substance: LANSOPRAZOLE

REACTIONS (6)
  - Depressed mood [None]
  - Mental disorder [None]
  - Social avoidant behaviour [None]
  - Screaming [None]
  - Suicidal behaviour [None]
  - Intentional self-injury [None]

NARRATIVE: CASE EVENT DATE: 20240210
